FAERS Safety Report 7368694-9 (Version None)
Quarter: 2011Q1

REPORT INFORMATION
  Report Type: 
  Country: None (occurrence: None)
  Receive Date: 20110323
  Receipt Date: 20110315
  Transmission Date: 20110831
  Serious: Yes (Life-Threatening, Other)
  Sender: FDA-Public Use
  Company Number: JP-SANOFI-AVENTIS-2011SA010221

PATIENT
  Age: 71 Year
  Sex: Male

DRUGS (4)
  1. ELPLAT [Suspect]
     Indication: LARGE INTESTINE CARCINOMA
     Route: 041
  2. FLUOROURACIL [Concomitant]
     Indication: LARGE INTESTINE CARCINOMA
     Route: 040
  3. CALCIUM LEVOFOLINATE [Suspect]
     Indication: LARGE INTESTINE CARCINOMA
     Route: 041
  4. FLUOROURACIL [Concomitant]
     Route: 041

REACTIONS (1)
  - ANGINA PECTORIS [None]
